FAERS Safety Report 4743828-0 (Version None)
Quarter: 2005Q3

REPORT INFORMATION
  Report Type: 
  Country: None (occurrence: None)
  Receive Date: 20050812
  Receipt Date: 20050214
  Transmission Date: 20060218
  Serious: Yes (Hospitalization, Disabling, Other)
  Sender: FDA-Public Use
  Company Number: US-MERCK-0502USA01890

PATIENT
  Age: 46 Year
  Sex: Female
  Weight: 159 kg

DRUGS (26)
  1. VIOXX [Suspect]
     Indication: OSTEOARTHRITIS
     Route: 048
     Dates: start: 20000101, end: 20020701
  2. HYDROCHLOROTHIAZIDE AND TRIAMTERENE [Concomitant]
     Route: 065
     Dates: start: 20000701, end: 20020701
  3. LOTENSIN [Concomitant]
     Route: 065
     Dates: start: 19900101
  4. LOTENSIN [Concomitant]
     Route: 065
     Dates: start: 20001101, end: 20010701
  5. CATAPRES-TTS-1 [Concomitant]
     Route: 065
     Dates: start: 20020801, end: 20031201
  6. NAPROXEN [Concomitant]
     Route: 065
     Dates: start: 20001001, end: 20001101
  7. REMERON [Concomitant]
     Route: 065
     Dates: start: 20000301
  8. SMZ-TMP [Concomitant]
     Route: 065
     Dates: start: 20000501
  9. PREMARIN [Concomitant]
     Route: 065
     Dates: start: 20000601
  10. PREMPRO [Concomitant]
     Route: 065
     Dates: start: 20001201, end: 20030601
  11. TOPROL-XL [Concomitant]
     Route: 065
     Dates: start: 20010101, end: 20030501
  12. SARAFEM [Concomitant]
     Route: 065
     Dates: start: 20001201, end: 20010101
  13. TIAZAC [Concomitant]
     Route: 065
     Dates: start: 20001201, end: 20010101
  14. DETROL [Concomitant]
     Route: 065
     Dates: start: 20001201
  15. SYNTHROID [Concomitant]
     Route: 065
     Dates: start: 20020101, end: 20020801
  16. ACETAMINOPHEN AND HYDROCODONE BITARTRATE [Concomitant]
     Route: 065
     Dates: start: 20000601, end: 20040901
  17. KLOR-CON [Concomitant]
     Route: 065
     Dates: start: 20020701, end: 20040401
  18. LOTREL [Concomitant]
     Route: 065
     Dates: start: 20010701, end: 20030601
  19. BEXTRA [Concomitant]
     Route: 065
     Dates: start: 20020801, end: 20030901
  20. HYDROXYZINE HYDROCHLORIDE [Concomitant]
     Route: 065
     Dates: start: 20010601, end: 20010701
  21. AMBIEN [Concomitant]
     Route: 065
     Dates: start: 20010601, end: 20010601
  22. VERELAN PM [Concomitant]
     Route: 065
     Dates: start: 20030701, end: 20041001
  23. TRICOR [Concomitant]
     Route: 065
     Dates: start: 20020101, end: 20031201
  24. KETOPROFEN [Concomitant]
     Route: 065
     Dates: start: 20000501, end: 20001101
  25. IBUPROFEN [Concomitant]
     Route: 065
     Dates: start: 19860101
  26. TYLENOL (CAPLET) [Concomitant]
     Route: 065

REACTIONS (20)
  - AMNESIA [None]
  - ANXIETY [None]
  - CEREBROVASCULAR ACCIDENT [None]
  - CEREBROVASCULAR ACCIDENT PROPHYLAXIS [None]
  - CHOLECYSTECTOMY [None]
  - COGNITIVE DISORDER [None]
  - DEEP VEIN THROMBOSIS [None]
  - DEPRESSION [None]
  - DIABETES MELLITUS [None]
  - DYSPNOEA [None]
  - HYPERSOMNIA [None]
  - NAUSEA [None]
  - OEDEMA PERIPHERAL [None]
  - PAIN [None]
  - PANIC ATTACK [None]
  - PULMONARY EMBOLISM [None]
  - SLEEP APNOEA SYNDROME [None]
  - SLEEP DISORDER [None]
  - SPEECH DISORDER [None]
  - TRANSIENT ISCHAEMIC ATTACK [None]
